FAERS Safety Report 6044642-9 (Version None)
Quarter: 2009Q1

REPORT INFORMATION
  Report Type: 
  Country: None (occurrence: None)
  Receive Date: 20090120
  Receipt Date: 20090112
  Transmission Date: 20090719
  Serious: Yes (Disabling)
  Sender: FDA-Public Use
  Company Number: GB-GENENTECH-274895

PATIENT
  Sex: Female

DRUGS (8)
  1. HERCEPTIN [Suspect]
     Indication: BREAST CANCER
     Dosage: 624 MG, Q3W
     Route: 042
     Dates: start: 20081125
  2. CISPLATIN [Concomitant]
     Indication: BREAST CANCER
     Dosage: UNK
     Dates: end: 20080802
  3. CYCLOPHOSPHAMIDE [Concomitant]
     Indication: BREAST CANCER
     Dosage: UNK
     Route: 065
     Dates: end: 20080802
  4. EPIRUBICIN [Concomitant]
     Indication: BREAST CANCER
     Dosage: UNK
     Dates: end: 20080802
  5. ETOPOSIDE [Concomitant]
     Indication: BREAST CANCER
     Dosage: UNK
     Dates: end: 20080802
  6. FLUOROURACIL [Concomitant]
     Indication: BREAST CANCER
     Dosage: UNK
     Dates: end: 20080802
  7. DOCETAXEL [Concomitant]
     Indication: BREAST CANCER
     Dosage: 136 MG, Q3W
     Route: 042
     Dates: start: 20080717, end: 20080828
  8. TAMOXIFEN CITRATE [Concomitant]
     Indication: DRUG USE FOR UNKNOWN INDICATION
     Dosage: 20 MG, QD
     Route: 048

REACTIONS (1)
  - CARPAL TUNNEL SYNDROME [None]
